FAERS Safety Report 6268087-1 (Version None)
Quarter: 2009Q3

REPORT INFORMATION
  Report Type: 
  Country: None (occurrence: None)
  Receive Date: 20090713
  Receipt Date: 20090702
  Transmission Date: 20100115
  Serious: Yes (Disabling, Other)
  Sender: FDA-Public Use
  Company Number: 2009AP002676

PATIENT
  Age: 89 Year
  Sex: Male

DRUGS (6)
  1. MYCOPHENOLATE MOFETIL [Suspect]
     Indication: PEMPHIGOID
     Dosage: 500 MG;BID; PO
     Route: 048
     Dates: start: 20090420, end: 20090511
  2. ALENDRONIC ACID (ALENDRONIC ACID) [Concomitant]
  3. LANSOPRAZOLE [Concomitant]
  4. PREDNISOLONE [Concomitant]
  5. SIMVASTATIN [Concomitant]
  6. GOSERELIN ACETATE (GOSERELIN ACETATE) [Concomitant]

REACTIONS (1)
  - HALLUCINATION [None]
